FAERS Safety Report 5908799-X (Version None)
Quarter: 2008Q3

REPORT INFORMATION
  Report Type: 
  Country: None (occurrence: None)
  Receive Date: 20080930
  Receipt Date: 20080919
  Transmission Date: 20090109
  Serious: No
  Sender: FDA-Public Use
  Company Number: 20085549

PATIENT
  Sex: Male

DRUGS (1)
  1. LIORESAL [Suspect]
     Indication: MUSCLE SPASTICITY
     Dosage: UNK MCG, DAILY; INTRATHECAL
     Route: 037

REACTIONS (2)
  - CATHETER SITE RELATED REACTION [None]
  - GAIT DISTURBANCE [None]
